FAERS Safety Report 9880849 (Version 5)
Quarter: 2016Q3

REPORT INFORMATION
  Report Type: Spontaneous
  Country: US (occurrence: US)
  Receive Date: 20140207
  Receipt Date: 20160829
  Transmission Date: 20161109
  Serious: Yes (Other)
  Sender: FDA-Public Use
  Company Number: US-PFIZER INC-2014035306

PATIENT
  Sex: Female

DRUGS (1)
  1. LYRICA [Suspect]
     Active Substance: PREGABALIN
     Indication: FIBROMYALGIA
     Dosage: 600 MG, DAILY (TWO IN THE MORNING, TWO IN THE AFTERNOON AND TWO IN THE EVENING)

REACTIONS (8)
  - Systemic lupus erythematosus [Unknown]
  - Malaise [Unknown]
  - Vomiting [Unknown]
  - Stress [Unknown]
  - Headache [Unknown]
  - Condition aggravated [Unknown]
  - Feeling abnormal [Unknown]
  - Mobility decreased [Unknown]
